FAERS Safety Report 4525167-6 (Version None)
Quarter: 2004Q4

REPORT INFORMATION
  Report Type: 
  Country: None (occurrence: None)
  Receive Date: 20041117
  Receipt Date: 20040209
  Transmission Date: 20050328
  Serious: Yes (Other)
  Sender: FDA-Public Use
  Company Number: 2004S1000409

PATIENT
  Sex: Female

DRUGS (4)
  1. CLOZAPINE [Suspect]
     Indication: SCHIZOAFFECTIVE DISORDER
     Dosage: 300MG Q HS, ORAL
     Route: 048
  2. TRAZODONE HCL [Concomitant]
  3. BUPROPION HYDROCHLORIDE SR [Concomitant]
  4. ALPRAZOLAM [Concomitant]

REACTIONS (1)
  - LEUKOPENIA [None]
